FAERS Safety Report 14068394 (Version 1)
Quarter: 2017Q4

REPORT INFORMATION
  Report Type: Other
  Country: TR (occurrence: TR)
  Receive Date: 20171010
  Receipt Date: 20171010
  Transmission Date: 20180321
  Serious: Yes (Hospitalization)
  Sender: FDA-Public Use
  Company Number: TR-ORCHID HEALTHCARE-2029418

PATIENT
  Age: 4 Day
  Sex: Male
  Weight: 3.25 kg

DRUGS (5)
  1. CEFDINIR. [Suspect]
     Active Substance: CEFDINIR
     Route: 048
  2. PARACETAMOL [Suspect]
     Active Substance: ACETAMINOPHEN
     Route: 048
  3. BEMIPARIN SODIUM [Suspect]
     Active Substance: BEMIPARIN SODIUM
     Route: 058
  4. IRON LLL HYDROXIDE [Suspect]
     Active Substance: FERRIC OXYHYDROXIDE
     Route: 048
  5. CLAVULANIC ACID [Suspect]
     Active Substance: CLAVULANIC ACID
     Route: 048

REACTIONS (12)
  - Convulsion neonatal [Recovered/Resolved]
  - Heart rate increased [Recovered/Resolved]
  - Accidental overdose [None]
  - Accidental overdose [Unknown]
  - Motor dysfunction [None]
  - Acute kidney injury [Recovered/Resolved]
  - Toxicity to various agents [Recovered/Resolved]
  - Drug administered to patient of inappropriate age [None]
  - Hypotension [Recovered/Resolved]
  - Metabolic acidosis [Recovered/Resolved]
  - Body temperature increased [Recovered/Resolved]
  - Lethargy [Recovered/Resolved]
